FAERS Safety Report 8240263-8 (Version None)
Quarter: 2012Q1

REPORT INFORMATION
  Report Type: 
  Country: None (occurrence: None)
  Receive Date: 20120328
  Receipt Date: 20120328
  Transmission Date: 20120608
  Serious: Yes (Other)
  Sender: FDA-Public Use
  Company Number: None

PATIENT
  Age: 42 Year
  Sex: Male
  Weight: 82.553 kg

DRUGS (1)
  1. CIPROFLOXACIN HCL [Suspect]
     Indication: PROSTATITIS
     Dosage: 500 MG
     Dates: start: 20110701, end: 20110730

REACTIONS (2)
  - MUSCULOSKELETAL CHEST PAIN [None]
  - NO THERAPEUTIC RESPONSE [None]
